FAERS Safety Report 16885394 (Version 2)
Quarter: 2019Q4

REPORT INFORMATION
  Report Type: Spontaneous
  Country: US (occurrence: US)
  Receive Date: 20191004
  Receipt Date: 20191017
  Transmission Date: 20200122
  Serious: Yes (Other)
  Sender: FDA-Public Use
  Company Number: US-AKORN PHARMACEUTICALS-2019AKN02067

PATIENT
  Sex: Female
  Weight: 56.69 kg

DRUGS (3)
  1. MYORISAN [Suspect]
     Active Substance: ISOTRETINOIN
     Indication: ACNE
     Dosage: 30 MG, 2X/DAY
     Dates: start: 20190805, end: 20190919
  2. METHYLPHENIDATE HYDROCHLORIDE. [Concomitant]
     Active Substance: METHYLPHENIDATE HYDROCHLORIDE
     Indication: ATTENTION DEFICIT/HYPERACTIVITY DISORDER
     Dosage: 1 TO 2 TABLETS TWO TIMES DAILY AS NEEDED
     Route: 048
  3. METHYLPHENIDATE HYDROCHLORIDE. [Concomitant]
     Active Substance: METHYLPHENIDATE HYDROCHLORIDE
     Dosage: 1 TABLETS, 2X/DAY
     Route: 048

REACTIONS (9)
  - Chapped lips [Unknown]
  - Eczema nummular [Unknown]
  - Eczema [Unknown]
  - Tearfulness [Unknown]
  - Self esteem decreased [Unknown]
  - Crying [Unknown]
  - Treatment noncompliance [Recovered/Resolved]
  - Sunburn [Unknown]
  - Mood altered [Unknown]

NARRATIVE: CASE EVENT DATE: 2019
